FAERS Safety Report 25006125 (Version 1)
Quarter: 2025Q1

REPORT INFORMATION
  Report Type: Spontaneous
  Country: CN (occurrence: CN)
  Receive Date: 20250224
  Receipt Date: 20250224
  Transmission Date: 20250409
  Serious: Yes (Other)
  Sender: PFIZER
  Company Number: CN-PFIZER INC-PV202500021907

PATIENT
  Age: 70 Year
  Sex: Male
  Weight: 52 kg

DRUGS (1)
  1. EXEMESTANE [Suspect]
     Active Substance: EXEMESTANE
     Indication: Breast cancer
     Dosage: 25 MG, 1X/DAY
     Route: 048
     Dates: start: 20250104, end: 20250109

REACTIONS (1)
  - Osteopenia [Unknown]

NARRATIVE: CASE EVENT DATE: 20250106
